FAERS Safety Report 9310958 (Version 1)
Quarter: 2013Q2

REPORT INFORMATION
  Report Type: Spontaneous
  Country: US (occurrence: US)
  Receive Date: 20130528
  Receipt Date: 20130528
  Transmission Date: 20140414
  Serious: Yes (Other)
  Sender: FDA-Public Use
  Company Number: US-JNJFOC-20130511621

PATIENT
  Sex: Male

DRUGS (2)
  1. XARELTO [Suspect]
     Indication: DEEP VEIN THROMBOSIS
     Route: 048
     Dates: end: 2013
  2. PLAVIX [Suspect]
     Indication: CHEST PAIN
     Route: 048
     Dates: start: 2013, end: 2013

REACTIONS (3)
  - Gastrointestinal haemorrhage [Unknown]
  - Chest pain [Unknown]
  - Drug prescribing error [Recovered/Resolved]
